FAERS Safety Report 13180774 (Version 1)
Quarter: 2017Q1

REPORT INFORMATION
  Report Type: Spontaneous
  Country: US (occurrence: US)
  Receive Date: 20170202
  Receipt Date: 20170202
  Transmission Date: 20170428
  Serious: No
  Sender: FDA-Public Use
  Company Number: US-SMITH AND NEPHEW, INC-2016SMT00030

PATIENT
  Sex: Female
  Weight: 107.3 kg

DRUGS (1)
  1. REGRANEX [Suspect]
     Active Substance: BECAPLERMIN
     Indication: PROMOTION OF WOUND HEALING
     Dosage: UNK, EVERY 2 TO 3 DAYS
     Route: 061
     Dates: start: 2015, end: 201512

REACTIONS (3)
  - Off label use [Unknown]
  - Application site erosion [Recovered/Resolved]
  - Inappropriate schedule of drug administration [Not Recovered/Not Resolved]

NARRATIVE: CASE EVENT DATE: 2015
